FAERS Safety Report 4656680-9 (Version None)
Quarter: 2005Q2

REPORT INFORMATION
  Report Type: 
  Country: None (occurrence: None)
  Receive Date: 20050331
  Receipt Date: 20050104
  Transmission Date: 20051028
  Serious: Yes (Hospitalization)
  Sender: FDA-Public Use
  Company Number: US104423

PATIENT
  Age: 76 Year
  Sex: Female
  Weight: 67.6 kg

DRUGS (5)
  1. NEULASTA [Suspect]
     Indication: CHEMOTHERAPY
     Dosage: 6 MG, 1 IN 1 DAYS, SC
     Route: 058
     Dates: start: 20040918, end: 20041119
  2. METFORMIN HCL [Concomitant]
  3. DOXORUBICIN HYDROCHLORIDE [Concomitant]
  4. CYCLOPHOSPHAMIDE [Concomitant]
  5. DOCETAXEL [Concomitant]

REACTIONS (8)
  - ARTHRALGIA [None]
  - ASTHENIA [None]
  - BACK PAIN [None]
  - BONE PAIN [None]
  - FATIGUE [None]
  - FEBRILE NEUTROPENIA [None]
  - MYALGIA [None]
  - PAIN IN EXTREMITY [None]
